FAERS Safety Report 10163687 (Version 1)
Quarter: 2014Q2

REPORT INFORMATION
  Report Type: Spontaneous
  Country: US (occurrence: US)
  Receive Date: 20140509
  Receipt Date: 20140509
  Transmission Date: 20141212
  Serious: No
  Sender: FDA-Public Use
  Company Number: US-B.I. PHARMACEUTICALS,INC./RIDGEFIELD-2014-BI-19798BP

PATIENT
  Age: 73 Year
  Sex: Female
  Weight: 100 kg

DRUGS (1)
  1. SPIRIVA [Suspect]
     Indication: PULMONARY OEDEMA
     Dosage: 18 MCG
     Route: 055
     Dates: start: 201401

REACTIONS (1)
  - Off label use [Unknown]
